FAERS Safety Report 7728866-8 (Version None)
Quarter: 2011Q3

REPORT INFORMATION
  Report Type: 
  Country: None (occurrence: None)
  Receive Date: 20110906
  Receipt Date: 20110831
  Transmission Date: 20111222
  Serious: Yes (Hospitalization, Other)
  Sender: FDA-Public Use
  Company Number: CA-ROXANE LABORATORIES, INC.-2011-RO-01201RO

PATIENT
  Age: 65 Year
  Sex: Male

DRUGS (3)
  1. FLUTICASONE AND SALMETEROL [Suspect]
     Route: 055
  2. PREDNISONE [Suspect]
     Dosage: 10 MG
  3. PREDNISONE [Suspect]
     Dosage: 30 MG

REACTIONS (6)
  - THYMOMA [None]
  - PNEUMOTHORAX [None]
  - PNEUMOMEDIASTINUM [None]
  - BRONCHITIS BACTERIAL [None]
  - RESPIRATORY SYNCYTIAL VIRUS BRONCHITIS [None]
  - MYASTHENIA GRAVIS [None]
